FAERS Safety Report 17570603 (Version 1)
Quarter: 2020Q1

REPORT INFORMATION
  Report Type: Spontaneous
  Country: CA (occurrence: CA)
  Receive Date: 20200323
  Receipt Date: 20200323
  Transmission Date: 20200409
  Serious: Yes (Other)
  Sender: FDA-Public Use
  Company Number: CA-TEVA-2020-CA-1209802

PATIENT
  Age: 58 Year
  Sex: Male

DRUGS (16)
  1. BICALUTAMIDE. [Suspect]
     Active Substance: BICALUTAMIDE
     Indication: PROSTATE CANCER
     Route: 065
  2. BICALUTAMIDE. [Interacting]
     Active Substance: BICALUTAMIDE
     Route: 065
  3. DARUNAVIR [Interacting]
     Active Substance: DARUNAVIR
     Indication: HIV INFECTION
     Dosage: 1200 MILLIGRAM DAILY;
     Route: 065
  4. DOLUTEGRAVIR [Interacting]
     Active Substance: DOLUTEGRAVIR
     Dosage: 100 MILLIGRAM DAILY;
     Route: 065
  5. ETRAVIRINE [Interacting]
     Active Substance: ETRAVIRINE
     Indication: HIV INFECTION
     Route: 065
  6. ETRAVIRINE [Interacting]
     Active Substance: ETRAVIRINE
     Indication: PRODUCT USED FOR UNKNOWN INDICATION
     Dosage: 400  DAILY;
     Route: 065
  7. LEUPROLIDE ACETATE. [Interacting]
     Active Substance: LEUPROLIDE ACETATE
     Indication: PROSTATE CANCER
     Route: 065
  8. EMTRICITABINE /TENOFOVIR ALAFENAMIDE FUMARATE [Concomitant]
     Indication: HIV INFECTION
     Route: 065
  9. BICALUTAMIDE. [Interacting]
     Active Substance: BICALUTAMIDE
     Route: 065
  10. ENZALUTAMIDE [Interacting]
     Active Substance: ENZALUTAMIDE
     Route: 065
  11. RITONAVIR. [Interacting]
     Active Substance: RITONAVIR
     Indication: PRODUCT USED FOR UNKNOWN INDICATION
     Dosage: 400 MILLIGRAM DAILY;
     Route: 065
  12. BICALUTAMIDE. [Interacting]
     Active Substance: BICALUTAMIDE
     Indication: METASTASES TO BONE
     Route: 065
  13. LEUPROLIDE ACETATE. [Interacting]
     Active Substance: LEUPROLIDE ACETATE
     Indication: METASTASES TO BONE
     Route: 065
  14. RITONAVIR. [Interacting]
     Active Substance: RITONAVIR
     Indication: HIV INFECTION
     Route: 065
  15. DARUNAVIR [Interacting]
     Active Substance: DARUNAVIR
     Indication: HIV INFECTION
  16. RALTEGRAVIR. [Concomitant]
     Active Substance: RALTEGRAVIR
     Indication: HIV INFECTION
     Route: 065

REACTIONS (4)
  - Prostate cancer [Unknown]
  - Drug level decreased [Unknown]
  - Drug ineffective [Unknown]
  - Drug interaction [Unknown]
